FAERS Safety Report 6850802-7 (Version None)
Quarter: 2010Q3

REPORT INFORMATION
  Report Type: 
  Country: None (occurrence: None)
  Receive Date: 20100716
  Receipt Date: 20071022
  Transmission Date: 20110219
  Serious: No
  Sender: FDA-Public Use
  Company Number: US-PFIZER INC-2007089856

PATIENT
  Sex: Male
  Weight: 98.2 kg

DRUGS (9)
  1. CHANTIX [Suspect]
     Indication: SMOKING CESSATION THERAPY
     Dates: start: 20070801
  2. PLAVIX [Concomitant]
  3. VALSARTAN [Concomitant]
  4. BUPROPION [Concomitant]
  5. ISOSORBIDE MONONITRATE [Concomitant]
  6. ACETYLSALICYLIC ACID [Concomitant]
  7. VYTORIN [Concomitant]
  8. METOPROLOL [Concomitant]
  9. DRUG, UNSPECIFIED [Concomitant]

REACTIONS (1)
  - HEART RATE INCREASED [None]
